FAERS Safety Report 8515609 (Version 2)
Quarter: 2012Q4

REPORT INFORMATION
  Report Type: 
  Country: US (occurrence: US)
  Receive Date: 20120417
  Receipt Date: 20121003
  Transmission Date: 20130627
  Serious: Yes (Life-Threatening, Hospitalization)
  Sender: FDA-Public Use
  Company Number: US-BAYER-2012-034074

PATIENT
  Age: 27 Year
  Sex: Female
  Weight: 33.11 kg

DRUGS (7)
  1. YASMIN [Suspect]
     Dosage: UNK
     Dates: start: 2006, end: 2010
  2. YAZ [Suspect]
     Dosage: UNK
     Dates: start: 2006, end: 2010
  3. LYRICA [Concomitant]
     Indication: PAIN
     Dosage: UNK
     Dates: start: 2008, end: 201105
  4. PREDNISONE [Concomitant]
     Indication: BODY TEMPERATURE INCREASED
  5. PREDNISONE [Concomitant]
     Indication: PAIN
  6. IBUPROFEN [Concomitant]
  7. VICODIN [Concomitant]

REACTIONS (8)
  - Cholelithiasis [None]
  - Pancreatitis [None]
  - Pain [None]
  - Mental disorder [None]
  - Injury [None]
  - Anxiety [None]
  - Anhedonia [None]
  - Fear [None]
